FAERS Safety Report 10059252 (Version 2)
Quarter: 2014Q2

REPORT INFORMATION
  Report Type: Spontaneous
  Country: US (occurrence: US)
  Receive Date: 20140404
  Receipt Date: 20140530
  Transmission Date: 20141212
  Serious: Yes (Hospitalization, Other)
  Sender: FDA-Public Use
  Company Number: US-BEH-2014041437

PATIENT
  Age: 57 Year
  Sex: Female

DRUGS (37)
  1. PRIVIGEN [Suspect]
     Indication: IMMUNODEFICIENCY COMMON VARIABLE
     Dosage: UP TO 124 ML/HR
     Route: 042
     Dates: start: 20110707
  2. PRIVIGEN [Suspect]
     Dosage: UP TO 75 ML/HR
     Route: 042
     Dates: start: 20110804
  3. PRIVIGEN [Suspect]
     Dosage: UP TO 200 ML/HR
     Route: 042
     Dates: start: 20110901
  4. PRIVIGEN [Suspect]
     Dosage: UP TO 264 ML/HR
     Route: 042
     Dates: start: 20110922, end: 20110922
  5. PRIVIGEN [Suspect]
     Dosage: UP TO 264 ML/HR
     Route: 042
     Dates: start: 20111003
  6. PRIVIGEN [Suspect]
     Dosage: UP TO 125 ML/HR
     Route: 042
     Dates: start: 20111110
  7. PRIVIGEN [Suspect]
     Dosage: UP TO 124 ML/HR
     Route: 042
     Dates: start: 20111208
  8. PRIVIGEN [Suspect]
     Dosage: 124 ( UP TO 136) ML/HR
     Route: 042
     Dates: start: 20120105
  9. PRIVIGEN [Suspect]
     Dosage: UP TO 128 ML/HR
     Route: 042
     Dates: start: 20120202
  10. PRIVIGEN [Suspect]
     Dosage: UP TO 124 ML/HR
     Route: 042
     Dates: start: 20120301
  11. PRIVIGEN [Suspect]
     Dosage: UP TO 128 ML/HR
     Route: 042
     Dates: start: 20120329
  12. PRIVIGEN [Suspect]
     Route: 042
     Dates: start: 20120503
  13. PRIVIGEN [Suspect]
     Route: 042
     Dates: start: 20120531
  14. PRIVIGEN [Suspect]
     Route: 042
     Dates: start: 20120802
  15. PRIVIGEN [Suspect]
     Dosage: UP TO 128 ML/HR
     Route: 042
     Dates: start: 20120705
  16. PRIVIGEN [Suspect]
     Route: 042
     Dates: start: 20120906
  17. PRIVIGEN [Suspect]
     Route: 042
     Dates: start: 20121004
  18. PRIVIGEN [Suspect]
     Route: 042
     Dates: start: 20121019
  19. PRIVIGEN [Suspect]
     Route: 042
     Dates: start: 20121206
  20. PRIVIGEN [Suspect]
     Dosage: UP TO 128 ML/HR
     Route: 042
     Dates: start: 20121101
  21. PRIVIGEN [Suspect]
     Dosage: UP TO 128 ML/HR
     Route: 042
     Dates: start: 20130103
  22. PRIVIGEN [Suspect]
     Dosage: UP TO 128 ML/HR
     Route: 042
     Dates: start: 20130207
  23. PRIVIGEN [Suspect]
     Dosage: UP TO 128 ML/HR
     Route: 042
     Dates: start: 20130301
  24. PRIVIGEN [Suspect]
     Dosage: UP TO 128 ML/HR
     Route: 042
     Dates: start: 20130329
  25. PRIVIGEN [Suspect]
     Route: 042
     Dates: start: 20130917
  26. PRIVIGEN [Suspect]
     Route: 042
     Dates: start: 20140206
  27. PRIVIGEN [Suspect]
     Dosage: UP TO 128 ML/HR
     Route: 042
     Dates: start: 20140403
  28. SOLUMEDROL [Concomitant]
     Indication: PREMEDICATION
     Route: 042
  29. SOLUMEDROL [Concomitant]
     Route: 042
  30. BENADRYL [Concomitant]
     Indication: PREMEDICATION
     Route: 042
  31. ZYRTEC [Concomitant]
  32. PEPCID [Concomitant]
  33. NORMAL SALINE [Concomitant]
     Route: 040
  34. DEXTROSE [Concomitant]
  35. FAMOTIDINE [Concomitant]
     Indication: PREMEDICATION
     Route: 042
  36. PLAVIX [Concomitant]
     Dates: start: 20121214
  37. ASA [Concomitant]
     Dates: end: 20121214

REACTIONS (91)
  - Thyroiditis subacute [Recovered/Resolved]
  - Hypertension [Recovered/Resolved]
  - Tremor [Recovered/Resolved]
  - Transient ischaemic attack [Recovered/Resolved]
  - Hypoaesthesia [Recovered/Resolved]
  - Dizziness [Recovered/Resolved]
  - Headache [Recovered/Resolved]
  - Headache [Recovered/Resolved]
  - Transient ischaemic attack [Recovered/Resolved]
  - Headache [Recovered/Resolved]
  - Pain [Recovered/Resolved]
  - Dyspnoea [Recovered/Resolved]
  - Chest pain [Recovered/Resolved]
  - Migraine [Recovered/Resolved]
  - Malaise [Recovered/Resolved]
  - Dyspnoea [Recovered/Resolved]
  - Pleural effusion [Recovered/Resolved]
  - Pericardial effusion [Recovered/Resolved]
  - Gastrointestinal haemorrhage [Recovered/Resolved]
  - Haematemesis [Recovered/Resolved]
  - Haematemesis [Recovered/Resolved]
  - Abdominal pain [Recovered/Resolved]
  - Musculoskeletal chest pain [Recovered/Resolved]
  - Lethargy [Recovered/Resolved]
  - Pyrexia [Recovered/Resolved]
  - Erosive oesophagitis [Recovered/Resolved]
  - Gastritis erosive [Recovered/Resolved]
  - Chest pain [Recovered/Resolved]
  - Lethargy [Recovered/Resolved]
  - Pain [Recovered/Resolved]
  - Chills [Recovered/Resolved]
  - Arthralgia [Recovered/Resolved]
  - Fall [Recovered/Resolved]
  - Wrist fracture [Recovered/Resolved]
  - Headache [Recovered/Resolved]
  - Arthralgia [Recovered/Resolved]
  - Headache [Recovered/Resolved]
  - Fatigue [Recovered/Resolved]
  - Headache [Recovered/Resolved]
  - Nausea [Recovered/Resolved]
  - Headache [Recovered/Resolved]
  - Infusion site swelling [Recovered/Resolved]
  - Infusion site haemorrhage [Recovered/Resolved]
  - Infusion site haematoma [Recovered/Resolved]
  - Headache [Recovered/Resolved]
  - Dyspnoea [Recovered/Resolved]
  - Fatigue [Recovered/Resolved]
  - Chest pain [Recovered/Resolved]
  - Infusion site haematoma [Recovered/Resolved]
  - Transient ischaemic attack [Recovered/Resolved]
  - Headache [Recovered/Resolved]
  - Malaise [Recovered/Resolved]
  - Headache [Recovered/Resolved]
  - Fatigue [Recovered/Resolved]
  - Pyrexia [Recovered/Resolved]
  - Nausea [Recovered/Resolved]
  - Chest discomfort [Recovered/Resolved]
  - Dyspnoea [Recovered/Resolved]
  - Chest pain [Recovered/Resolved]
  - Chills [Recovered/Resolved]
  - Pain [Recovered/Resolved]
  - Headache [Recovered/Resolved]
  - Back pain [Recovered/Resolved]
  - Headache [Recovered/Resolved]
  - Headache [Recovered/Resolved]
  - Infusion site extravasation [Recovered/Resolved]
  - Dizziness [Recovered/Resolved]
  - Back pain [Recovered/Resolved]
  - Dyspnoea [Recovered/Resolved]
  - Headache [Recovered/Resolved]
  - Pruritus [Recovered/Resolved]
  - Migraine [Recovered/Resolved]
  - Headache [Recovered/Resolved]
  - Migraine [Recovered/Resolved]
  - Migraine [Recovered/Resolved]
  - Nausea [Recovered/Resolved]
  - Vomiting [Recovered/Resolved]
  - Musculoskeletal pain [Recovered/Resolved]
  - Headache [Recovered/Resolved]
  - Blood pressure decreased [Recovered/Resolved]
  - Infusion site bruising [Recovered/Resolved]
  - Headache [Recovered/Resolved]
  - Vision blurred [Recovered/Resolved]
  - Flank pain [Recovered/Resolved]
  - Adrenal insufficiency [Recovered/Resolved]
  - Headache [Recovered/Resolved]
  - Nausea [Recovered/Resolved]
  - Lethargy [Recovered/Resolved]
  - Back pain [Recovered/Resolved]
  - Headache [Recovered/Resolved]
  - Headache [Recovered/Resolved]
